FAERS Safety Report 5148042-5 (Version None)
Quarter: 2006Q4

REPORT INFORMATION
  Report Type: 
  Country: None (occurrence: None)
  Receive Date: 20061110
  Receipt Date: 20061103
  Transmission Date: 20070319
  Serious: Yes (Other)
  Sender: FDA-Public Use
  Company Number: IT-GLAXOSMITHKLINE-B0446064A

PATIENT
  Age: 82 Year
  Sex: Female

DRUGS (2)
  1. SEREUPIN [Suspect]
     Indication: DEPRESSION
     Dosage: 20MG PER DAY
     Route: 048
     Dates: start: 20060717, end: 20060822
  2. UNKNOWN NAME [Concomitant]
     Route: 048

REACTIONS (3)
  - PRURITUS [None]
  - RASH MACULO-PAPULAR [None]
  - VASCULITIS [None]
